FAERS Safety Report 12705694 (Version 1)
Quarter: 2016Q3

REPORT INFORMATION
  Report Type: Spontaneous
  Country: US (occurrence: None)
  Receive Date: 20160831
  Receipt Date: 20160831
  Transmission Date: 20161109
  Serious: Yes (Other)
  Sender: FDA-Public Use
  Company Number: None

PATIENT
  Age: 65 Year
  Sex: Female

DRUGS (18)
  1. ECOTRIN [Concomitant]
     Active Substance: ASPIRIN
  2. SYNTHROID [Concomitant]
     Active Substance: LEVOTHYROXINE SODIUM
  3. NABUMETONE. [Concomitant]
     Active Substance: NABUMETONE
  4. CENTRUM MULTI VIT [Concomitant]
  5. FUROSEMIDE. [Concomitant]
     Active Substance: FUROSEMIDE
  6. MAG OX [Concomitant]
     Active Substance: MAGNESIUM OXIDE
  7. TOPROL XL [Concomitant]
     Active Substance: METOPROLOL SUCCINATE
  8. VITAMIN D3 [Concomitant]
     Active Substance: CHOLECALCIFEROL
  9. VITAMIN E [Concomitant]
     Active Substance: .ALPHA.-TOCOPHEROL
  10. METOPROLOL SUCC ER 25 MG TAB, UU, 25 MG [Suspect]
     Active Substance: METOPROLOL SUCCINATE
     Indication: HYPERTENSION
     Route: 048
     Dates: end: 2015
  11. CRESTOR [Concomitant]
     Active Substance: ROSUVASTATIN CALCIUM
  12. PREMARIN CREAM [Concomitant]
  13. NIACIN. [Concomitant]
     Active Substance: NIACIN
  14. VITAMIN B12 [Concomitant]
     Active Substance: CYANOCOBALAMIN
  15. TYLENOL [Concomitant]
     Active Substance: ACETAMINOPHEN
  16. POTASSIUM CL [Concomitant]
     Active Substance: POTASSIUM CHLORIDE
  17. OMEPRAZOLE. [Concomitant]
     Active Substance: OMEPRAZOLE
  18. LISINOPRIL. [Concomitant]
     Active Substance: LISINOPRIL

REACTIONS (6)
  - Fatigue [None]
  - Chest pain [None]
  - Product substitution issue [None]
  - Weight decreased [None]
  - Dyspnoea [None]
  - Economic problem [None]

NARRATIVE: CASE EVENT DATE: 201506
